FAERS Safety Report 22882208 (Version 3)
Quarter: 2023Q4

REPORT INFORMATION
  Report Type: Spontaneous
  Country: US (occurrence: US)
  Receive Date: 20230830
  Receipt Date: 20231130
  Transmission Date: 20240110
  Serious: Yes (Hospitalization)
  Sender: FDA-Public Use
  Company Number: US-PFIZER INC-202300285841

PATIENT
  Age: 75 Year
  Sex: Female
  Weight: 79.379 kg

DRUGS (3)
  1. PAXLOVID [Suspect]
     Active Substance: NIRMATRELVIR\RITONAVIR
     Indication: COVID-19 treatment
     Dosage: 300 MG NIRMATRELVIR 2X DAILY; 100 MG RITONAVIR 2X DAILY
     Dates: start: 20230817, end: 20230821
  2. EQUATE PAIN RELIEVER [Concomitant]
     Active Substance: ACETAMINOPHEN
     Dosage: UNK
     Dates: start: 20230809, end: 20230814
  3. TYLENOL [Concomitant]
     Active Substance: ACETAMINOPHEN
     Dosage: UNK
     Dates: start: 20230817, end: 20230821

REACTIONS (5)
  - Diarrhoea [Recovered/Resolved]
  - Weight decreased [Recovered/Resolved]
  - Dysgeusia [Recovered/Resolved]
  - COVID-19 [Recovered/Resolved]
  - Disease recurrence [Recovered/Resolved]

NARRATIVE: CASE EVENT DATE: 20230801
